FAERS Safety Report 10460511 (Version 2)
Quarter: 2024Q3

REPORT INFORMATION
  Report Type: Spontaneous
  Country: DE (occurrence: DE)
  Receive Date: 20140918
  Receipt Date: 20240926
  Transmission Date: 20241017
  Serious: Yes (Other)
  Sender: AUROBINDO
  Company Number: DE-14-AUR-0039

PATIENT
  Age: 32 Year
  Sex: Female
  Weight: 82 kg

DRUGS (9)
  1. HYDROCHLOROTHIAZIDE [Suspect]
     Active Substance: HYDROCHLOROTHIAZIDE
     Indication: Hypertension
     Dosage: 25 MG, TWO TIMES A DAY
     Route: 048
     Dates: start: 20121206, end: 20130314
  2. METOPROLOL [Suspect]
     Active Substance: METOPROLOL
     Indication: Hypertension
     Dosage: 50 MG, 3 TIMES A DAY
     Route: 048
     Dates: start: 20121206
  3. VALSARTAN [Suspect]
     Active Substance: VALSARTAN
     Indication: Hypertension
     Dosage: 160 MG, ONCE A DAY
     Route: 048
     Dates: start: 20121206, end: 20130311
  4. DIAZEPAM [Concomitant]
     Active Substance: DIAZEPAM
     Indication: Acute stress disorder
     Dosage: AFTER THE DEATH OF HER MOTHER, IF REQUIRED
     Route: 048
  5. FOLIC ACID [Concomitant]
     Active Substance: FOLIC ACID
     Indication: Prophylaxis of neural tube defect
     Dosage: 0.4 MG, ONCE A DAY
     Route: 048
     Dates: start: 20121206, end: 20130314
  6. METHYLDOPA [Concomitant]
     Active Substance: METHYLDOPA
     Indication: Hypertension
     Dosage: 25 MG, 3 TIMES A DAY
     Route: 048
     Dates: start: 20130312, end: 20130619
  7. NOVORAPID [Concomitant]
     Active Substance: INSULIN ASPART
     Indication: Type 1 diabetes mellitus
     Dosage: INSULIN AS PART
     Route: 058
     Dates: start: 20121206, end: 20130619
  8. Nepresol [Concomitant]
     Indication: Hypertension
     Dosage: UNK
     Route: 048
  9. LEVOTHYROXINE SODIUM [Concomitant]
     Active Substance: LEVOTHYROXINE SODIUM
     Indication: Hypothyroidism
     Dosage: 75 ?G, ONCE A DAY
     Route: 048
     Dates: start: 20121206, end: 20130619

REACTIONS (4)
  - Nephrotic syndrome [Unknown]
  - Pre-eclampsia [Unknown]
  - Condition aggravated [Unknown]
  - Maternal exposure during pregnancy [Unknown]
